FAERS Safety Report 6475828-7 (Version None)
Quarter: 2009Q4

REPORT INFORMATION
  Report Type: 
  Country: None (occurrence: None)
  Receive Date: 20091204
  Receipt Date: 20090106
  Transmission Date: 20100525
  Serious: No
  Sender: FDA-Public Use
  Company Number: US-AMGEN-KDL327095

PATIENT
  Sex: Female

DRUGS (1)
  1. ENBREL [Suspect]
     Indication: ANKYLOSING SPONDYLITIS
     Route: 058
     Dates: start: 20081201

REACTIONS (6)
  - FEELING ABNORMAL [None]
  - INJECTION SITE PAIN [None]
  - INJECTION SITE SWELLING [None]
  - LOCAL REACTION [None]
  - SINUS HEADACHE [None]
  - THINKING ABNORMAL [None]
